FAERS Safety Report 19765317 (Version 1)
Quarter: 2021Q3

REPORT INFORMATION
  Report Type: Spontaneous
  Country: FR (occurrence: FR)
  Receive Date: 20210830
  Receipt Date: 20210830
  Transmission Date: 20211014
  Serious: Yes (Life-Threatening)
  Sender: FDA-Public Use
  Company Number: FR-PFIZER INC-202101053234

PATIENT
  Age: 46 Year
  Sex: Male

DRUGS (5)
  1. BACTRIM [Suspect]
     Active Substance: SULFAMETHOXAZOLE\TRIMETHOPRIM
     Indication: OSTEITIS
     Dosage: 2 DF
     Route: 048
     Dates: start: 20210625, end: 20210710
  2. DAPTOMYCINE MEDAC [Suspect]
     Active Substance: DAPTOMYCIN
     Indication: OSTEITIS
     Dosage: 750 MG, 1X/DAY
     Route: 042
     Dates: start: 20210628, end: 20210710
  3. PIPERACILLINE TAZOBACTAM MYLAN [Suspect]
     Active Substance: PIPERACILLIN SODIUM\TAZOBACTAM SODIUM
     Indication: OSTEITIS
     Dosage: 1 DF, 3X/DAY (EVERY 8 HOURS)
     Route: 042
     Dates: start: 20210616, end: 20210710
  4. LINEZOLID. [Suspect]
     Active Substance: LINEZOLID
     Indication: OSTEITIS
     Dosage: 600 MG, 2X/DAY
     Route: 048
     Dates: start: 20210616, end: 20210625
  5. CEFEPIME [Suspect]
     Active Substance: CEFEPIME HYDROCHLORIDE
     Indication: OSTEITIS
     Dosage: 2 G, 3X/DAY (EVERY 8 HOURS)
     Route: 042
     Dates: start: 20210625, end: 20210628

REACTIONS (2)
  - Drug reaction with eosinophilia and systemic symptoms [Recovered/Resolved]
  - Off label use [Unknown]

NARRATIVE: CASE EVENT DATE: 20210616
